FAERS Safety Report 4603210-3 (Version None)
Quarter: 2005Q1

REPORT INFORMATION
  Report Type: 
  Country: None (occurrence: None)
  Receive Date: 20050307
  Receipt Date: 20050222
  Transmission Date: 20050727
  Serious: Yes (Hospitalization)
  Sender: FDA-Public Use
  Company Number: 2005035939

PATIENT
  Age: 49 Year
  Sex: Male
  Weight: 75 kg

DRUGS (6)
  1. METHYLPREDNISOLONE ACETATE [Suspect]
     Indication: ILL-DEFINED DISORDER
     Dosage: 120 MG (INTERVAL: EVERY DAY), INTRAVENOUS
     Route: 042
     Dates: start: 20050103, end: 20050105
  2. EPIRUBICIN [Suspect]
     Indication: ILL-DEFINED DISORDER
     Dosage: 75 MG, INTRAVENOUS
     Route: 042
     Dates: start: 20050103, end: 20050103
  3. ETOPOSIDE [Suspect]
     Indication: ILL-DEFINED DISORDER
     Dosage: 190 MG (D),  INTRAVENOUS
     Route: 042
     Dates: start: 20050103, end: 20050103
  4. CISPLATIN [Suspect]
     Indication: ILL-DEFINED DISORDER
     Dosage: 190 MG, INTRAVENOUS
     Route: 042
     Dates: start: 20050104, end: 20050104
  5. PREDNISONE [Suspect]
     Indication: ILL-DEFINED DISORDER
     Dosage: 40 MG (INTERVAL: EVERY DAY), ORAL
     Route: 048
  6. CYCLOPHOSPHAMIDE [Suspect]
     Indication: ILL-DEFINED DISORDER
     Dosage: 750 MG (D), INTRAVENOUS
     Route: 042
     Dates: start: 20050103, end: 20050105

REACTIONS (4)
  - HYPOCALCAEMIA [None]
  - HYPOKALAEMIA [None]
  - HYPONATRAEMIA [None]
  - NEPHROPATHY [None]
